FAERS Safety Report 4520891-3 (Version None)
Quarter: 2004Q4

REPORT INFORMATION
  Report Type: 
  Country: None (occurrence: None)
  Receive Date: 20041207
  Receipt Date: 20041206
  Transmission Date: 20050328
  Serious: Yes (Hospitalization, Other)
  Sender: FDA-Public Use
  Company Number: 003673

PATIENT
  Sex: Female

DRUGS (2)
  1. METHYLPREDNISOLONE [Suspect]
     Indication: EYE DISORDER
  2. METHYLPREDNISOLONE [Suspect]
     Indication: RASH

REACTIONS (3)
  - HALLUCINATION [None]
  - PSYCHOTIC DISORDER [None]
  - SUICIDAL IDEATION [None]
